FAERS Safety Report 23474960 (Version 1)
Quarter: 2024Q1

REPORT INFORMATION
  Report Type: Report from Study
  Country: US (occurrence: US)
  Receive Date: 20240204
  Receipt Date: 20240204
  Transmission Date: 20240409
  Serious: Yes (Other)
  Sender: FDA-Public Use
  Company Number: US-EXELIXIS-CABO-23070091

PATIENT
  Sex: Female

DRUGS (2)
  1. CABOMETYX [Suspect]
     Active Substance: CABOZANTINIB S-MALATE
     Indication: Renal cancer
     Dosage: 40 MG, QD
     Route: 048
  2. CABOMETYX [Suspect]
     Active Substance: CABOZANTINIB S-MALATE
     Dosage: 20 MG, QD
     Route: 048

REACTIONS (10)
  - Fatigue [Unknown]
  - Headache [Unknown]
  - Fall [Unknown]
  - Dizziness [Unknown]
  - Taste disorder [Unknown]
  - Decreased appetite [Unknown]
  - Nausea [Unknown]
  - Malaise [Unknown]
  - Peripheral swelling [Unknown]
  - Productive cough [Unknown]
